FAERS Safety Report 5468981-5 (Version None)
Quarter: 2007Q3

REPORT INFORMATION
  Report Type: 
  Country: None (occurrence: None)
  Receive Date: 20070820
  Receipt Date: 20070709
  Transmission Date: 20080115
  Serious: No
  Sender: FDA-Public Use
  Company Number: WAES 0707USA01322

PATIENT
  Age: 37 Year
  Sex: Male

DRUGS (6)
  1. JANUVIA [Suspect]
     Indication: DIABETES MELLITUS
     Dosage: DAILY/PO, 50 MG/DAILY/PO
     Route: 048
  2. IMURAN [Concomitant]
  3. PRAVACHOL [Concomitant]
  4. PROGRAF [Concomitant]
  5. PHENOBARBITAL TAB [Concomitant]
  6. PREDNISONE [Concomitant]

REACTIONS (4)
  - DRUG INEFFECTIVE [None]
  - FEELING ABNORMAL [None]
  - PALLOR [None]
  - WRONG TECHNIQUE IN DRUG USAGE PROCESS [None]
